FAERS Safety Report 8186394-2 (Version None)
Quarter: 2012Q1

REPORT INFORMATION
  Report Type: 
  Country: None (occurrence: None)
  Receive Date: 20120306
  Receipt Date: 20120301
  Transmission Date: 20120608
  Serious: Yes (Other)
  Sender: FDA-Public Use
  Company Number: IE-US-EMD SERONO, INC.-7050728

PATIENT
  Sex: Male

DRUGS (2)
  1. LYRICA [Concomitant]
     Indication: PAIN
  2. REBIF [Suspect]
     Indication: RELAPSING-REMITTING MULTIPLE SCLEROSIS
     Dates: start: 20030824

REACTIONS (7)
  - MASS [None]
  - INJECTION SITE MASS [None]
  - ABSCESS [None]
  - GAMMA-GLUTAMYLTRANSFERASE INCREASED [None]
  - ABDOMINAL HERNIA [None]
  - ALANINE AMINOTRANSFERASE INCREASED [None]
  - BLOOD GLUCOSE INCREASED [None]
